FAERS Safety Report 21107232 (Version 1)
Quarter: 2022Q3

REPORT INFORMATION
  Report Type: Spontaneous
  Country: GB (occurrence: None)
  Receive Date: 20220720
  Receipt Date: 20220720
  Transmission Date: 20221026
  Serious: Yes (Hospitalization)
  Sender: FDA-Public Use
  Company Number: GB-Eisai Medical Research-EC-2022-119122

PATIENT
  Age: 70 Year
  Sex: Female
  Weight: 59 kg

DRUGS (2)
  1. LENVIMA [Suspect]
     Active Substance: LENVATINIB
     Indication: Endometrial cancer
     Dosage: 20 MG, FREQUENCY UNKNOWN
     Route: 048
     Dates: start: 20220623, end: 202207
  2. KEYTRUDA [Concomitant]
     Active Substance: PEMBROLIZUMAB
     Indication: Endometrial cancer
     Dosage: 200 MG, FREQUENCY UNKNOWN
     Route: 041
     Dates: start: 20220623

REACTIONS (2)
  - Colitis [Recovering/Resolving]
  - Uterine perforation [Recovering/Resolving]

NARRATIVE: CASE EVENT DATE: 20220708
